FAERS Safety Report 4465361-6 (Version None)
Quarter: 2004Q3

REPORT INFORMATION
  Report Type: 
  Country: None (occurrence: None)
  Receive Date: 20040929
  Receipt Date: 20040909
  Transmission Date: 20050211
  Serious: Yes (Hospitalization)
  Sender: FDA-Public Use
  Company Number: USA040875405

PATIENT
  Age: 45 Year
  Sex: Female
  Weight: 73 kg

DRUGS (10)
  1. FORTEO [Suspect]
     Indication: OSTEOPOROSIS
     Dosage: 20 UG/1 DAY
     Dates: start: 20040616
  2. PREDNISONE [Concomitant]
  3. NEXIUM [Concomitant]
  4. VASOTEC [Concomitant]
  5. MERTHIOLATE (THIOMESAL) [Concomitant]
  6. OXYCONTIN [Concomitant]
  7. OXYCODONE HCL [Concomitant]
  8. LIMBITROL [Concomitant]
  9. PHOSLO [Concomitant]
  10. EFFEXOR [Concomitant]

REACTIONS (10)
  - ANOREXIA [None]
  - FOOT FRACTURE [None]
  - INJECTION SITE REACTION [None]
  - MYALGIA [None]
  - NAUSEA [None]
  - NERVE ROOT COMPRESSION [None]
  - PAIN IN EXTREMITY [None]
  - PHARMACEUTICAL PRODUCT COMPLAINT [None]
  - VOMITING [None]
  - WEIGHT DECREASED [None]
